FAERS Safety Report 4577605-0 (Version None)
Quarter: 2005Q1

REPORT INFORMATION
  Report Type: 
  Country: None (occurrence: None)
  Receive Date: 20050208
  Receipt Date: 20050127
  Transmission Date: 20050727
  Serious: Yes (Hospitalization)
  Sender: FDA-Public Use
  Company Number: 2005PK00197

PATIENT
  Age: 44 Year
  Sex: Female

DRUGS (2)
  1. TAMOXIFEN CITRATE [Suspect]
     Indication: BREAST CANCER
     Dates: start: 20010614, end: 20040208
  2. ARIMIDEX [Suspect]
     Dates: start: 20040209, end: 20040704

REACTIONS (5)
  - COUGH [None]
  - DYSPNOEA [None]
  - NASAL CONGESTION [None]
  - POSTMENOPAUSAL HAEMORRHAGE [None]
  - RHINORRHOEA [None]
